FAERS Safety Report 5048429-5 (Version None)
Quarter: 2006Q3

REPORT INFORMATION
  Report Type: 
  Country: None (occurrence: None)
  Receive Date: 20060705
  Receipt Date: 20060612
  Transmission Date: 20061208
  Serious: Yes (Other)
  Sender: FDA-Public Use
  Company Number: US200606003185

PATIENT
  Age: 58 Year
  Sex: Female

DRUGS (1)
  1. HUMULIN 70/30 [Suspect]
     Indication: DIABETES MELLITUS

REACTIONS (4)
  - ALOPECIA [None]
  - BLOOD GLUCOSE INCREASED [None]
  - HYSTERECTOMY [None]
  - SKIN DISCOLOURATION [None]
